FAERS Safety Report 9280934 (Version 1)
Quarter: 2013Q2

REPORT INFORMATION
  Report Type: Spontaneous
  Country: US (occurrence: US)
  Receive Date: 20130509
  Receipt Date: 20130509
  Transmission Date: 20140414
  Serious: No
  Sender: FDA-Public Use
  Company Number: US-009507513-1305USA003174

PATIENT
  Sex: Female

DRUGS (2)
  1. DULERA [Suspect]
     Indication: WHEEZING
     Dosage: TWO PUFFS, TWICE A DAY
     Route: 048
     Dates: start: 201303
  2. DULERA [Suspect]
     Indication: CHRONIC OBSTRUCTIVE PULMONARY DISEASE

REACTIONS (3)
  - Incorrect dose administered [Unknown]
  - Product quality issue [Unknown]
  - No adverse event [Unknown]
